FAERS Safety Report 20633142 (Version 1)
Quarter: 2022Q1

REPORT INFORMATION
  Report Type: Other
  Country: None (occurrence: US)
  Receive Date: 20220324
  Receipt Date: 20220324
  Transmission Date: 20220423
  Serious: Yes (Hospitalization)
  Sender: FDA-Public Use
  Company Number: US-Larken Laboratories, Inc.-2127084

PATIENT
  Age: 25 Year
  Sex: Female
  Weight: 68.182 kg

DRUGS (1)
  1. DOXYCYCLINE HYCLATE [Suspect]
     Active Substance: DOXYCYCLINE HYCLATE
     Indication: Urethritis

REACTIONS (1)
  - Gastric perforation [Recovered/Resolved]
